FAERS Safety Report 13927362 (Version 1)
Quarter: 2017Q3

REPORT INFORMATION
  Report Type: Spontaneous
  Country: US (occurrence: US)
  Receive Date: 20170831
  Receipt Date: 20170831
  Transmission Date: 20171127
  Serious: Yes (Hospitalization, Disabling, Other)
  Sender: FDA-Public Use
  Company Number: None

PATIENT
  Age: 58 Year
  Sex: Male
  Weight: 98.1 kg

DRUGS (32)
  1. VITAMIN B12 [Concomitant]
     Active Substance: CYANOCOBALAMIN
  2. ZINC. [Concomitant]
     Active Substance: ZINC
  3. LORATADINE. [Concomitant]
     Active Substance: LORATADINE
  4. AMLODAPINE [Concomitant]
  5. DULOXETINE. [Concomitant]
     Active Substance: DULOXETINE
  6. ROSUVASTATIN. [Concomitant]
     Active Substance: ROSUVASTATIN
  7. VITAMIN C [Concomitant]
     Active Substance: ASCORBIC ACID
  8. L-LYSINE [Concomitant]
     Active Substance: LYSINE
  9. PROBIOTIC [Concomitant]
     Active Substance: PROBIOTICS NOS
  10. MELATONIN [Concomitant]
     Active Substance: MELATONIN
  11. CALCIUM [Concomitant]
     Active Substance: CALCIUM
  12. MODAFINIL. [Concomitant]
     Active Substance: MODAFINIL
  13. JARDIANCE [Suspect]
     Active Substance: EMPAGLIFLOZIN
     Indication: TYPE 1 DIABETES MELLITUS
     Dosage: ?          QUANTITY:1 TABLET(S);?
     Route: 048
     Dates: start: 20151210, end: 20170518
  14. TRAZODONE [Concomitant]
     Active Substance: TRAZODONE HYDROCHLORIDE
  15. BACLOFEN. [Concomitant]
     Active Substance: BACLOFEN
  16. METOPROLOL ER [Concomitant]
     Active Substance: METOPROLOL SUCCINATE
  17. ROPINEROLE [Concomitant]
     Active Substance: ROPINIROLE
  18. GABAPENTIN. [Concomitant]
     Active Substance: GABAPENTIN
  19. POTASSIUM [Concomitant]
     Active Substance: POTASSIUM
  20. MIRALAX [Concomitant]
     Active Substance: POLYETHYLENE GLYCOL 3350
  21. LITHIUM OROTATE [Concomitant]
     Active Substance: LITHIUM OROTATE
  22. CLOPIDIGREL [Concomitant]
  23. VITAMIN D3 [Concomitant]
     Active Substance: CHOLECALCIFEROL
  24. MAGNESIUM [Concomitant]
     Active Substance: MAGNESIUM
  25. SENNA [Concomitant]
     Active Substance: SENNA LEAF\SENNOSIDES\SENNOSIDES A AND B
  26. ASPIRIN. [Concomitant]
     Active Substance: ASPIRIN
  27. TAURINE [Concomitant]
     Active Substance: TAURINE
  28. INSULIN PUMP WITH HUMALOG [Concomitant]
  29. LEVOTHYROXINE. [Concomitant]
     Active Substance: LEVOTHYROXINE
  30. B COMPLEX [Concomitant]
  31. LISINOPRIL. [Suspect]
     Active Substance: LISINOPRIL
  32. FISH OIL [Concomitant]
     Active Substance: FISH OIL

REACTIONS (2)
  - Dry gangrene [None]
  - Leg amputation [None]

NARRATIVE: CASE EVENT DATE: 20170519
